FAERS Safety Report 15945109 (Version 1)
Quarter: 2019Q1

REPORT INFORMATION
  Report Type: Spontaneous
  Country: US (occurrence: US)
  Receive Date: 20190212
  Receipt Date: 20190212
  Transmission Date: 20190417
  Serious: Yes (Hospitalization)
  Sender: FDA-Public Use
  Company Number: None

PATIENT
  Age: 26 Year
  Sex: Female
  Weight: 81.65 kg

DRUGS (1)
  1. LILETTA [Suspect]
     Active Substance: LEVONORGESTREL
     Dates: start: 20170606, end: 20190106

REACTIONS (5)
  - Chest pain [None]
  - Complication associated with device [None]
  - Blood iron decreased [None]
  - Uterine infection [None]
  - Pelvic pain [None]

NARRATIVE: CASE EVENT DATE: 20190106
